FAERS Safety Report 6559081-1 (Version None)
Quarter: 2010Q1

REPORT INFORMATION
  Report Type: 
  Country: None (occurrence: None)
  Receive Date: 20100129
  Receipt Date: 20100118
  Transmission Date: 20100710
  Serious: Yes (Hospitalization, Other)
  Sender: FDA-Public Use
  Company Number: US-ELI_LILLY_AND_COMPANY-US201001003929

PATIENT
  Sex: Female

DRUGS (2)
  1. FORTEO [Suspect]
     Dates: start: 20090101
  2. WARFARIN SODIUM [Concomitant]

REACTIONS (4)
  - FEELING ABNORMAL [None]
  - HOSPITALISATION [None]
  - LYMPHOMA [None]
  - RENAL DISORDER [None]
